FAERS Safety Report 6879588-7 (Version None)
Quarter: 2010Q3

REPORT INFORMATION
  Report Type: 
  Country: None (occurrence: None)
  Receive Date: 20100727
  Receipt Date: 20100723
  Transmission Date: 20110219
  Serious: Yes (Other)
  Sender: FDA-Public Use
  Company Number: US-ABBOTT-10P-163-0658153-00

PATIENT
  Sex: Female
  Weight: 86.26 kg

DRUGS (2)
  1. SIMCOR [Suspect]
     Indication: CORONARY ARTERY BYPASS
     Dosage: 500/20 MG X 2 TABLETS EVERY NIGHT
     Dates: start: 20090101
  2. SIMCOR [Suspect]
     Indication: BLOOD CHOLESTEROL INCREASED

REACTIONS (3)
  - FALL [None]
  - MUSCLE STRAIN [None]
  - WRIST FRACTURE [None]
